FAERS Safety Report 4696137-2 (Version None)
Quarter: 2005Q2

REPORT INFORMATION
  Report Type: 
  Country: None (occurrence: None)
  Receive Date: 20050620
  Receipt Date: 20050606
  Transmission Date: 20051028
  Serious: Yes (Death)
  Sender: FDA-Public Use
  Company Number: A101203

PATIENT
  Age: 68 Year
  Sex: Female
  Weight: 70 kg

DRUGS (32)
  1. FLUCONAZOLE [Suspect]
     Indication: SEPSIS
     Dosage: 200 MG (DAILY), ORAL
     Route: 048
     Dates: start: 19981223, end: 19981223
  2. DILTIAZEM HYDROCHLORIDE [Suspect]
     Indication: AORTIC VALVE INCOMPETENCE
     Dosage: ORAL
     Route: 048
     Dates: start: 19981211
  3. FUROSEMIDE [Suspect]
     Indication: CARDIAC FAILURE
     Dosage: 500 MG (DAILY), INTRAVENOUS
     Route: 042
     Dates: start: 19981221
  4. TAZOBAC (PIPERACILLIN SODIUM, TAZOBACTAM SODIUM) [Suspect]
     Indication: SEPSIS
     Dosage: INTRAVENOUS
     Route: 042
     Dates: start: 19981231, end: 19981231
  5. HEPARIN [Suspect]
     Indication: THROMBOSIS PROPHYLAXIS
     Dosage: INTRAVENOUS
     Route: 042
     Dates: start: 19981216, end: 19981217
  6. PRIMAXIN [Suspect]
     Indication: SEPSIS
     Dosage: INTRAVENOUS
     Route: 042
     Dates: start: 19981217, end: 19981218
  7. POTASSIUM CHLORIDE [Suspect]
     Indication: HYPOKALAEMIA
     Dosage: ORAL
     Route: 048
     Dates: start: 19981219, end: 19981219
  8. ALBUMIN (HUMAN) [Suspect]
     Indication: ILL-DEFINED DISORDER
     Dosage: INTRAVENOUS
     Route: 042
     Dates: start: 19981220, end: 19981220
  9. KONAKION [Suspect]
     Indication: ILL-DEFINED DISORDER
     Dosage: INTRAVENOUS
     Route: 042
     Dates: start: 19981221, end: 19981222
  10. SODIUM POLYSTYRENE SULFONATE [Suspect]
     Indication: HYPERKALAEMIA
     Dosage: ORAL
     Route: 048
     Dates: start: 19981221, end: 19981223
  11. DIGITOXIN TAB [Suspect]
     Indication: CARDIAC FAILURE
     Dosage: ORAL
     Route: 048
     Dates: start: 19981222
  12. DUSODRIL (NAFTIDROFURYL OXALATE) [Suspect]
     Indication: ILL-DEFINED DISORDER
     Dosage: ORAL
     Route: 048
     Dates: start: 19981223, end: 19981229
  13. BALDRIPARAN (VALERIAN EXTRACT, VISCUM ALBUM, CRATAEGUS EXTRACT, HUMULU [Suspect]
     Indication: RESTLESSNESS
     Dosage: ORAL
     Route: 048
     Dates: start: 19981225, end: 19981225
  14. OMEPRAZOLE [Suspect]
     Indication: STOMA CARE
     Dosage: ORAL
     Route: 048
     Dates: start: 19981231, end: 19981231
  15. BENAZEPRIL HCL AND HYDROCHLOROTHIAZIDE [Suspect]
     Indication: HYPERTENSION
     Dosage: ORAL
     Route: 048
     Dates: end: 19981207
  16. ROCEPHIN [Suspect]
     Indication: SEPSIS
     Dosage: ORAL
     Route: 048
     Dates: start: 19981207, end: 19981215
  17. ERYTHROMYCIN [Suspect]
     Indication: SEPSIS
     Dosage: INTRAVENOUS
     Route: 042
     Dates: start: 19981221, end: 19981227
  18. STANGYL (TRIMIPRAMINE MALEATE) [Suspect]
     Indication: ILL-DEFINED DISORDER
     Dosage: ORAL
     Route: 048
     Dates: end: 19981217
  19. MIDAZOLAM HCL [Suspect]
     Indication: RESTLESSNESS
     Dosage: ORAL
     Route: 048
     Dates: start: 19981210, end: 19981210
  20. VANCOMYCIN [Suspect]
     Indication: SEPSIS
     Dosage: INTRAVENOUS
     Route: 042
     Dates: start: 19981221, end: 19981223
  21. NATRIUMCHLORID (SODIUM CHLORIDE) [Concomitant]
  22. RED BLOOD CELLS [Concomitant]
  23. RULID  (ROXITHROMYCIN) [Concomitant]
  24. PHENPROCUMON (PHENPROCOUMON) [Concomitant]
  25. LANSOPRAZOLE [Concomitant]
  26. PHYTONADIONE [Concomitant]
  27. LACTULOSE [Concomitant]
  28. ACETAMINOPHEN [Concomitant]
  29. PIRETANIDE (PIRETANIDE) [Concomitant]
  30. SPIRONOLACTONE [Concomitant]
  31. PANTOPRAZOLE SODIUM (PANTOPRAZOLE SODIIUM) [Concomitant]
  32. HEPARIN [Concomitant]

REACTIONS (6)
  - CARDIAC FAILURE [None]
  - HAEMORRHAGE [None]
  - RESTLESSNESS [None]
  - SEPSIS [None]
  - STEVENS-JOHNSON SYNDROME [None]
  - TOXIC EPIDERMAL NECROLYSIS [None]
